FAERS Safety Report 17217490 (Version 1)
Quarter: 2019Q4

REPORT INFORMATION
  Report Type: Spontaneous
  Country: DE (occurrence: DE)
  Receive Date: 20191231
  Receipt Date: 20191231
  Transmission Date: 20200122
  Serious: Yes (Hospitalization, Other)
  Sender: FDA-Public Use
  Company Number: DE-ASTRAZENECA-2019SF86907

PATIENT
  Sex: Female
  Weight: 85 kg

DRUGS (2)
  1. FULVESTRANT. [Suspect]
     Active Substance: FULVESTRANT
     Indication: BREAST CANCER METASTATIC
     Route: 030
     Dates: start: 20180718
  2. FULVESTRANT. [Suspect]
     Active Substance: FULVESTRANT
     Indication: BREAST CANCER METASTATIC
     Route: 030
     Dates: start: 20180528, end: 20180620

REACTIONS (2)
  - Malignant neoplasm progression [Not Recovered/Not Resolved]
  - Breast cancer metastatic [Not Recovered/Not Resolved]

NARRATIVE: CASE EVENT DATE: 20191106
